FAERS Safety Report 4605248-9 (Version None)
Quarter: 2005Q1

REPORT INFORMATION
  Report Type: 
  Country: None (occurrence: None)
  Receive Date: 20050310
  Receipt Date: 20040301
  Transmission Date: 20050727
  Serious: No
  Sender: FDA-Public Use
  Company Number: US-BRISTOL-MYERS SQUIBB COMPANY-12522637

PATIENT
  Age: 21 Year
  Sex: Female
  Weight: 57 kg

DRUGS (2)
  1. VAGISTAT-1 [Suspect]
     Indication: VAGINAL MYCOSIS
     Route: 067
     Dates: start: 20040229, end: 20040229
  2. TRI-LEVLEN [Concomitant]
     Indication: CONTRACEPTION
     Route: 048

REACTIONS (3)
  - VAGINAL PAIN [None]
  - VAGINAL SWELLING [None]
  - VULVOVAGINAL DISCOMFORT [None]
